FAERS Safety Report 20752480 (Version 3)
Quarter: 2023Q2

REPORT INFORMATION
  Report Type: Spontaneous
  Country: US (occurrence: None)
  Receive Date: 20220426
  Receipt Date: 20230420
  Transmission Date: 20230722
  Serious: No
  Sender: FDA-Public Use
  Company Number: US-ROCHE-2840733

PATIENT
  Sex: Male

DRUGS (1)
  1. ESBRIET [Suspect]
     Active Substance: PIRFENIDONE
     Indication: Cough
     Dosage: TAKE 1 TABLET BY MOUTH THREE TIMES A DAY WITH FOOD.?DATE OF THERAPY 23/JUN/2020
     Route: 048

REACTIONS (2)
  - Product dose omission issue [Unknown]
  - No adverse event [Unknown]
